FAERS Safety Report 7060773-9 (Version None)
Quarter: 2010Q4

REPORT INFORMATION
  Report Type: 
  Country: None (occurrence: None)
  Receive Date: 20101025
  Receipt Date: 20100902
  Transmission Date: 20110411
  Serious: No
  Sender: FDA-Public Use
  Company Number: US-BAUSCH-2010BL004970

PATIENT
  Age: 31 Year
  Sex: Male

DRUGS (4)
  1. TOBRAMYCIN AND DEXAMETHASONE [Suspect]
     Indication: OCULAR HYPERAEMIA
     Route: 047
     Dates: start: 20100830, end: 20100830
  2. TOBRAMYCIN AND DEXAMETHASONE [Suspect]
     Indication: PROPHYLAXIS
     Route: 047
     Dates: start: 20100830, end: 20100830
  3. TOBRAMYCIN AND DEXAMETHASONE [Suspect]
     Route: 047
     Dates: start: 20100831, end: 20100831
  4. TOBRAMYCIN AND DEXAMETHASONE [Suspect]
     Route: 047
     Dates: start: 20100831, end: 20100831

REACTIONS (1)
  - DRUG HYPERSENSITIVITY [None]
